FAERS Safety Report 8161717-9 (Version None)
Quarter: 2012Q1

REPORT INFORMATION
  Report Type: 
  Country: None (occurrence: None)
  Receive Date: 20120224
  Receipt Date: 20110315
  Transmission Date: 20120608
  Serious: No
  Sender: FDA-Public Use
  Company Number: US-BRISTOL-MYERS SQUIBB COMPANY-15514433

PATIENT
  Age: 63 Year
  Sex: Female

DRUGS (3)
  1. LANTUS [Suspect]
     Indication: TYPE 2 DIABETES MELLITUS
     Dosage: LANTUS PARENTRAL INJ SOLUTION 100IU/ML FEW MONTHS
     Route: 058
     Dates: start: 20101101
  2. METFORMIN HCL [Suspect]
     Indication: TYPE 2 DIABETES MELLITUS
     Dosage: TAB
     Route: 065
  3. APIDRA [Concomitant]

REACTIONS (1)
  - BLOOD GLUCOSE INCREASED [None]
